FAERS Safety Report 8065238-3 (Version None)
Quarter: 2012Q1

REPORT INFORMATION
  Report Type: 
  Country: None (occurrence: None)
  Receive Date: 20120124
  Receipt Date: 20120116
  Transmission Date: 20120608
  Serious: Yes (Hospitalization, Other)
  Sender: FDA-Public Use
  Company Number: US-BAYER-2011-034369

PATIENT
  Age: 28 Year
  Sex: Female
  Weight: 72.562 kg

DRUGS (9)
  1. MIDRIN [Concomitant]
     Indication: MIGRAINE
     Dosage: UNK UNK, PRN
     Dates: start: 19990101, end: 20060101
  2. ACETAMINOPHEN [Concomitant]
     Indication: HEADACHE
     Dosage: UNK UNK, BIW
     Dates: start: 20060711, end: 20060713
  3. YASMIN [Suspect]
     Indication: CONTRACEPTION
     Dosage: UNK
     Dates: start: 20050901, end: 20060701
  4. YASMIN [Suspect]
     Indication: PREMENSTRUAL SYNDROME
  5. LORTAB [Concomitant]
     Indication: PAIN
     Dosage: 7.5 MG, UNK
     Dates: start: 19990801
  6. YASMIN [Suspect]
     Indication: ACNE
  7. SIMPLY SLEEP [Concomitant]
     Indication: SLEEP DISORDER THERAPY
     Dosage: UNK UNK, BIW
     Dates: start: 20060714, end: 20060715
  8. NAPROXEN (ALEVE) [Concomitant]
     Indication: HEADACHE
     Dosage: UNK UNK, OW
     Dates: start: 20060712
  9. ZOLOFT [Concomitant]
     Dosage: UNK
     Dates: end: 20060601

REACTIONS (9)
  - DYSPNOEA [None]
  - PAIN [None]
  - PULMONARY EMBOLISM [None]
  - DEPRESSION [None]
  - EMOTIONAL DISTRESS [None]
  - ANXIETY [None]
  - INJURY [None]
  - CHOLELITHIASIS [None]
  - GENERAL PHYSICAL HEALTH DETERIORATION [None]
